FAERS Safety Report 4912908-9 (Version None)
Quarter: 2006Q1

REPORT INFORMATION
  Report Type: 
  Country: None (occurrence: None)
  Receive Date: 20060215
  Receipt Date: 20060208
  Transmission Date: 20060701
  Serious: Yes (Hospitalization)
  Sender: FDA-Public Use
  Company Number: PHRM2006FR00757

PATIENT
  Age: 47 Year
  Sex: Male

DRUGS (2)
  1. TRILEPTAL [Suspect]
     Dosage: 1800 MG/DAY
     Route: 048
  2. FLUVOXAMINE MALEATE [Concomitant]
     Dosage: 150 MG/DAY
     Route: 048

REACTIONS (5)
  - CEREBROVASCULAR ACCIDENT [None]
  - DIPLOPIA [None]
  - HYPONATRAEMIA [None]
  - MALAISE [None]
  - TRANSIENT ISCHAEMIC ATTACK [None]
